FAERS Safety Report 6176477-0 (Version None)
Quarter: 2009Q2

REPORT INFORMATION
  Report Type: 
  Country: None (occurrence: None)
  Receive Date: 20090501
  Receipt Date: 20090422
  Transmission Date: 20091009
  Serious: Yes (Other)
  Sender: FDA-Public Use
  Company Number: PHHY2009SE09268

PATIENT
  Sex: Female

DRUGS (4)
  1. ZOMETA [Suspect]
     Indication: BREAST CANCER
     Dosage: 4 MG, UNK
     Dates: start: 20060601, end: 20081001
  2. OXYNORM [Concomitant]
     Dosage: UNK
  3. ACETAMINOPHEN [Concomitant]
  4. DICLOFENAC [Concomitant]

REACTIONS (4)
  - DEPRESSED MOOD [None]
  - DEPRESSION [None]
  - OSTEONECROSIS [None]
  - TOOTH EXTRACTION [None]
